FAERS Safety Report 7414098-X (Version None)
Quarter: 2011Q2

REPORT INFORMATION
  Report Type: 
  Country: None (occurrence: None)
  Receive Date: 20110414
  Receipt Date: 20110412
  Transmission Date: 20111010
  Serious: Yes (Hospitalization, Other)
  Sender: FDA-Public Use
  Company Number: US-PFIZER INC-2011041863

PATIENT
  Sex: Female
  Weight: 102.49 kg

DRUGS (10)
  1. CLARINASE ONCE DAILY [Concomitant]
     Dosage: 5 MG, QD
     Route: 048
  2. DOLOBID [Concomitant]
     Dosage: 500 MG, BID
     Route: 048
     Dates: end: 20110126
  3. DIFLUCAN [Concomitant]
     Dosage: 150 MG, UNK
     Route: 048
  4. HYDROXYCHLOROQUINE [Concomitant]
     Dosage: UNK
     Dates: end: 20110126
  5. SULFASALAZINE [Suspect]
     Dosage: UNK
     Dates: end: 20110126
  6. HYDROXYZINE HYDROCHLORIDE [Concomitant]
     Dosage: 25 MG, AS NEEDED
     Route: 048
  7. COMBIPATCH [Concomitant]
     Dosage: UNK UNK, 2 TIMES/WK
     Route: 062
  8. ENBREL [Suspect]
     Indication: RHEUMATOID ARTHRITIS
     Dosage: 50 MG, QWK
     Dates: start: 20041220, end: 20110101
  9. VITAMIN D [Concomitant]
     Dosage: 50000 UNIT, QWK
     Route: 048
  10. ALLEGRA [Concomitant]
     Dosage: 180 MG, QD
     Route: 048

REACTIONS (39)
  - CENTRAL NERVOUS SYSTEM LESION [None]
  - SYNCOPE [None]
  - HEADACHE [None]
  - VISION BLURRED [None]
  - VERTIGO POSITIONAL [None]
  - BLINDNESS [None]
  - MASS [None]
  - BLOOD PRESSURE INCREASED [None]
  - RASH PAPULAR [None]
  - LYMPHOCYTE COUNT INCREASED [None]
  - LOSS OF CONSCIOUSNESS [None]
  - SINUS TACHYCARDIA [None]
  - CONVULSION [None]
  - VITREOUS FLOATERS [None]
  - NOCTURIA [None]
  - HYPERHIDROSIS [None]
  - PHOTOPSIA [None]
  - NERVOUS SYSTEM DISORDER [None]
  - PARTIAL SEIZURES [None]
  - DIZZINESS [None]
  - INSOMNIA [None]
  - PALATAL DISORDER [None]
  - SINUSITIS [None]
  - NIGHTMARE [None]
  - TINNITUS [None]
  - NAUSEA [None]
  - MEMORY IMPAIRMENT [None]
  - MIGRAINE [None]
  - CEREBROVASCULAR ACCIDENT [None]
  - SNORING [None]
  - DRUG ERUPTION [None]
  - PARAESTHESIA ORAL [None]
  - GAIT DISTURBANCE [None]
  - ABDOMINAL DISCOMFORT [None]
  - WHEEZING [None]
  - APNOEA [None]
  - VISUAL IMPAIRMENT [None]
  - CHEST PAIN [None]
  - TONGUE COATED [None]
